FAERS Safety Report 16724181 (Version 10)
Quarter: 2022Q4

REPORT INFORMATION
  Report Type: Report from Study
  Country: TR (occurrence: None)
  Receive Date: 20190821
  Receipt Date: 20221117
  Transmission Date: 20230112
  Serious: Yes (Death, Hospitalization)
  Sender: FDA-Public Use
  Company Number: TR-ROCHE-2383671

PATIENT
  Age: 78 Year
  Sex: Female
  Weight: 86 kg

DRUGS (38)
  1. POLATUZUMAB VEDOTIN [Suspect]
     Active Substance: POLATUZUMAB VEDOTIN
     Indication: Diffuse large B-cell lymphoma
     Dosage: DATE OF MOST RECENT DOSE ADMINISTERED PRIOR TO SAE ONSET: 01/AUG/2019
     Route: 042
     Dates: start: 20190510
  2. PLACEBO [Suspect]
     Active Substance: UNSPECIFIED INGREDIENT
     Indication: Diffuse large B-cell lymphoma
     Dosage: DATE OF MOST RECENT DOSE ADMINISTERED PRIOR TO SAE ONSET: 01/AUG/2019
     Route: 042
     Dates: start: 20190510
  3. RITUXIMAB [Suspect]
     Active Substance: RITUXIMAB
     Indication: Diffuse large B-cell lymphoma
     Dosage: DATE OF MOST RECENT DOSE ADMINISTERED PRIOR TO SAE ONSET: 01/AUG/2019 (645 MG)
     Route: 042
     Dates: start: 20190509
  4. DOXORUBICIN [Suspect]
     Active Substance: DOXORUBICIN
     Indication: Diffuse large B-cell lymphoma
     Dosage: DATE OF MOST RECENT DOSE ADMINISTERED PRIOR TO SAE ONSET: 01/AUG/2019 (86 MG)
     Route: 042
     Dates: start: 20190510
  5. CYCLOPHOSPHAMIDE [Suspect]
     Active Substance: CYCLOPHOSPHAMIDE
     Indication: Diffuse large B-cell lymphoma
     Dosage: DATE OF MOST RECENT DOSE ADMINISTERED PRIOR TO SAE ONSET: 01/AUG/2019 (1290 MG)
     Route: 042
     Dates: start: 20190510
  6. PREDNISONE [Suspect]
     Active Substance: PREDNISONE
     Indication: Diffuse large B-cell lymphoma
     Dosage: ON DAYS 1-5 OF EVERY 21-DAY CYCLE FOR 6 CYCLES?DATE OF MOST RECENT DOSE ADMINISTERED PRIOR TO SAE ON
     Route: 048
     Dates: start: 20190509
  7. VIREAD [Concomitant]
     Active Substance: TENOFOVIR DISOPROXIL FUMARATE
     Route: 048
     Dates: start: 20190426
  8. HIPERSAR [Concomitant]
     Indication: Hypertension
     Route: 048
     Dates: start: 2004
  9. CEDRINA [Concomitant]
     Indication: Insomnia
     Route: 048
     Dates: start: 2017
  10. VASOSERC [Concomitant]
     Indication: Dizziness
     Route: 048
     Dates: start: 2004
  11. BELOC (TURKEY) [Concomitant]
     Indication: Palpitations
     Route: 048
     Dates: start: 20190412
  12. ASPIRIN [Concomitant]
     Active Substance: ASPIRIN
     Route: 048
     Dates: start: 2017
  13. TRIMEBUTINE MALEATE [Concomitant]
     Active Substance: TRIMEBUTINE MALEATE
     Indication: Abdominal distension
     Route: 048
     Dates: start: 20190529
  14. PANTO (TURKEY) [Concomitant]
     Route: 048
     Dates: start: 201904
  15. KYTRIL [Concomitant]
     Active Substance: GRANISETRON HYDROCHLORIDE
     Route: 048
     Dates: start: 20190511
  16. NEURONTIN [Concomitant]
     Active Substance: GABAPENTIN
     Indication: Neuralgia
     Route: 048
     Dates: start: 20190627
  17. LOMOTIL (TURKEY) [Concomitant]
     Indication: Diarrhoea
     Route: 048
     Dates: start: 20190626
  18. PAROL [Concomitant]
     Active Substance: ACETAMINOPHEN
     Route: 048
     Dates: start: 20190712, end: 20190712
  19. PAROL [Concomitant]
     Active Substance: ACETAMINOPHEN
     Route: 048
     Dates: start: 20190801, end: 20190801
  20. PHENIRAMINE [Concomitant]
     Active Substance: PHENIRAMINE
     Route: 042
     Dates: start: 20190712, end: 20190712
  21. BENZYDEX [Concomitant]
     Indication: Mucosal inflammation
     Route: 048
     Dates: start: 20190710
  22. NYSTATIN [Concomitant]
     Active Substance: NYSTATIN
     Indication: Oral candidiasis
     Route: 048
     Dates: start: 20190710
  23. NEXIUM [Concomitant]
     Active Substance: ESOMEPRAZOLE MAGNESIUM
     Indication: Dyspepsia
     Route: 048
     Dates: start: 20190710
  24. AVITAZ [Concomitant]
     Indication: Febrile neutropenia
     Route: 042
     Dates: start: 20190630, end: 20190710
  25. PANTOZOL [Concomitant]
     Active Substance: PANTOPRAZOLE SODIUM
     Indication: Dyspepsia
     Route: 042
     Dates: start: 20190708, end: 20190710
  26. METOPROLOL [Concomitant]
     Active Substance: METOPROLOL
     Route: 042
     Dates: start: 20190708, end: 20190710
  27. POTASSIUM CHLORIDE [Concomitant]
     Active Substance: POTASSIUM CHLORIDE
     Indication: Hypokalaemia
     Route: 042
     Dates: start: 20190709, end: 20190709
  28. POTASSIUM CHLORIDE [Concomitant]
     Active Substance: POTASSIUM CHLORIDE
     Route: 042
     Dates: start: 20190815, end: 20190815
  29. EFERMAG [Concomitant]
     Indication: Hypomagnesaemia
     Route: 048
     Dates: start: 20190710, end: 20190710
  30. EMOJECT [Concomitant]
     Indication: Vomiting
     Route: 042
     Dates: start: 20190710, end: 20190710
  31. FILGRASTIM [Concomitant]
     Active Substance: FILGRASTIM
     Indication: Vomiting
     Route: 058
     Dates: start: 20190719, end: 20190721
  32. CARDENOR [Concomitant]
     Indication: Hypotension
     Route: 042
     Dates: start: 20190814, end: 20190815
  33. LEFOX [Concomitant]
     Indication: Pneumonia
     Route: 042
     Dates: start: 20190815, end: 20190815
  34. MEROSID [Concomitant]
     Indication: Pneumonia
     Route: 042
     Dates: start: 20190815, end: 20190815
  35. ONDAREN [Concomitant]
     Indication: Nausea
     Route: 042
     Dates: start: 20190815, end: 20190815
  36. PROGAS [Concomitant]
     Indication: Gastritis
     Route: 042
     Dates: start: 20190814, end: 20190814
  37. FILGRASTIM [Concomitant]
     Active Substance: FILGRASTIM
     Indication: Neutropenia
     Route: 042
     Dates: start: 20190814, end: 20190814
  38. UNACEFIN [Concomitant]
     Indication: Pneumonia
     Route: 042
     Dates: start: 20190814, end: 20190814

REACTIONS (1)
  - Acute kidney injury [Fatal]

NARRATIVE: CASE EVENT DATE: 20190808
